FAERS Safety Report 5307765-5 (Version None)
Quarter: 2007Q2

REPORT INFORMATION
  Report Type: 
  Country: None (occurrence: None)
  Receive Date: 20070425
  Receipt Date: 20070417
  Transmission Date: 20071010
  Serious: Yes (Other)
  Sender: FDA-Public Use
  Company Number: US-ALLERGAN-0703770US

PATIENT
  Age: 78 Year
  Sex: Female

DRUGS (6)
  1. LISINOPRIL [Suspect]
     Indication: HYPERTENSION
     Dosage: UNK, UNKNOWN
     Route: 048
  2. BLEPHAMIDE[R] OINTMENT [Suspect]
     Indication: EYE INFECTION BACTERIAL
     Dosage: UNK, PRN
     Route: 047
  3. TOPROL-XL [Concomitant]
     Indication: HYPERTENSION
     Route: 048
  4. PHOSPHOLINE IODIDE [Concomitant]
     Indication: GLAUCOMA
     Dosage: UNK, UNKNOWN
     Route: 047
  5. TRAVATAN [Concomitant]
     Indication: GLAUCOMA
     Dosage: UNK, QHS
     Route: 047
  6. BETIMOL [Concomitant]
     Indication: GLAUCOMA
     Dosage: UNK, BID
     Route: 047

REACTIONS (4)
  - DRUG HYPERSENSITIVITY [None]
  - EYE PRURITUS [None]
  - EYELID OEDEMA [None]
  - PHARYNGEAL OEDEMA [None]
